FAERS Safety Report 16858956 (Version 2)
Quarter: 2020Q3

REPORT INFORMATION
  Report Type: Spontaneous
  Country: US (occurrence: US)
  Receive Date: 20190926
  Receipt Date: 20200831
  Transmission Date: 20201102
  Serious: Yes (Hospitalization, Other)
  Sender: FDA-Public Use
  Company Number: US-GILEAD-2019-0429204

PATIENT
  Sex: Female
  Weight: 47.62 kg

DRUGS (18)
  1. EPIVIR [Concomitant]
     Active Substance: LAMIVUDINE
  2. JULUCA [Concomitant]
     Active Substance: DOLUTEGRAVIR SODIUM\RILPIVIRINE HYDROCHLORIDE
  3. CRIXIVAN [Concomitant]
     Active Substance: INDINAVIR SULFATE
  4. NEPHRO VITE RX [Concomitant]
     Active Substance: ASCORBIC ACID\BIOTIN\CALCIUM PANTOTHENATE\CYANOCOBALAMIN\FOLIC ACID\NIACINAMIDE\PYRIDOXINE HYDROCHLORIDE\RIBOFLAVIN\THIAMINE MONONITRATE
  5. SEVELAMER [Concomitant]
     Active Substance: SEVELAMER
  6. NORVIR [Concomitant]
     Active Substance: RITONAVIR
  7. VIRAMUNE XR [Concomitant]
     Active Substance: NEVIRAPINE
  8. ZERIT [Concomitant]
     Active Substance: STAVUDINE
  9. REYATAZ [Concomitant]
     Active Substance: ATAZANAVIR SULFATE
  10. SELZENTRY [Concomitant]
     Active Substance: MARAVIROC
  11. VIDEX [Concomitant]
     Active Substance: DIDANOSINE
  12. TRUVADA [Suspect]
     Active Substance: EMTRICITABINE\TENOFOVIR DISOPROXIL FUMARATE
     Dosage: UNK
     Route: 048
     Dates: start: 2010, end: 2015
  13. VITAMINS NOS [Concomitant]
     Active Substance: VITAMINS
  14. ZIAGEN [Concomitant]
     Active Substance: ABACAVIR SULFATE
  15. TRUVADA [Suspect]
     Active Substance: EMTRICITABINE\TENOFOVIR DISOPROXIL FUMARATE
     Indication: HIV INFECTION
     Dosage: UNK
     Route: 048
     Dates: start: 2004
  16. KALETRA [Concomitant]
     Active Substance: LOPINAVIR\RITONAVIR
  17. VIRACEPT [Concomitant]
     Active Substance: NELFINAVIR MESYLATE
  18. SUSTIVA [Concomitant]
     Active Substance: EFAVIRENZ

REACTIONS (13)
  - Decreased activity [Not Recovered/Not Resolved]
  - Depression [Recovered/Resolved]
  - Economic problem [Not Recovered/Not Resolved]
  - Renal pain [Not Recovered/Not Resolved]
  - Anxiety [Not Recovered/Not Resolved]
  - Emotional distress [Not Recovered/Not Resolved]
  - Quality of life decreased [Not Recovered/Not Resolved]
  - Fatigue [Not Recovered/Not Resolved]
  - Chronic kidney disease [Not Recovered/Not Resolved]
  - Pain [Not Recovered/Not Resolved]
  - Renal failure [Unknown]
  - Loss of personal independence in daily activities [Not Recovered/Not Resolved]
  - Anhedonia [Not Recovered/Not Resolved]
